FAERS Safety Report 11651377 (Version 2)
Quarter: 2015Q4

REPORT INFORMATION
  Report Type: Report from Study
  Country: US (occurrence: US)
  Receive Date: 20151022
  Receipt Date: 20151023
  Transmission Date: 20160304
  Serious: Yes (Hospitalization, Other)
  Sender: FDA-Public Use
  Company Number: PHHY2014US120264

PATIENT
  Age: 64 Year
  Sex: Male
  Weight: 78 kg

DRUGS (4)
  1. TACROLIMUS. [Suspect]
     Active Substance: TACROLIMUS
     Indication: RENAL TRANSPLANT
     Dosage: 1.5 MG, BID
     Route: 048
     Dates: start: 20130724, end: 20140122
  2. TACROLIMUS. [Suspect]
     Active Substance: TACROLIMUS
     Dosage: 3.5 MG, DAILY (1.5 MG IN THE MORNING AND 2 MG IN THE AFTERNOON)
     Route: 048
     Dates: start: 20140123
  3. PREDNISONE. [Concomitant]
     Active Substance: PREDNISONE
     Indication: PRODUCT USED FOR UNKNOWN INDICATION
     Dosage: UNK
     Route: 065
     Dates: start: 20131102
  4. SIMULECT [Suspect]
     Active Substance: BASILIXIMAB
     Indication: RENAL TRANSPLANT
     Dosage: 20 MG, BID
     Route: 042
     Dates: start: 20130724, end: 20140728

REACTIONS (7)
  - Body temperature increased [Recovered/Resolved]
  - Skin fibrosis [Unknown]
  - Squamous cell carcinoma of skin [Recovered/Resolved]
  - Escherichia urinary tract infection [Recovered/Resolved]
  - Dermatitis [Unknown]
  - Rash [Unknown]
  - Hepatitis C [Recovering/Resolving]

NARRATIVE: CASE EVENT DATE: 20131002
